FAERS Safety Report 22054947 (Version 1)
Quarter: 2023Q1

REPORT INFORMATION
  Report Type: Spontaneous
  Country: FR (occurrence: FR)
  Receive Date: 20230302
  Receipt Date: 20230302
  Transmission Date: 20230417
  Serious: Yes (Hospitalization)
  Sender: FDA-Public Use
  Company Number: None

PATIENT
  Age: 51 Year
  Sex: Male
  Weight: 58 kg

DRUGS (5)
  1. CARBOPLATIN [Suspect]
     Active Substance: CARBOPLATIN
     Indication: Adenocarcinoma
     Dosage: 609 MG EVERY 24 HOURS (DAY 1)
     Route: 042
     Dates: start: 20230203, end: 20230203
  2. SEVOFLURANE [Suspect]
     Active Substance: SEVOFLURANE
     Indication: Endotracheal intubation
     Dosage: 1 DF
     Route: 055
     Dates: start: 20230130, end: 20230208
  3. PROPOFOL [Suspect]
     Active Substance: PROPOFOL
     Indication: Sedation
     Dosage: 1 DF
     Route: 042
     Dates: start: 20230204
  4. ETOPOSIDE [Suspect]
     Active Substance: ETOPOSIDE
     Indication: Adenocarcinoma
     Dosage: 161 MG EVERY 24 HOURS (DAY1, DAY 2 AND DAY 3)
     Route: 042
     Dates: start: 20230203, end: 20230205
  5. REMIFENTANIL HYDROCHLORIDE [Suspect]
     Active Substance: REMIFENTANIL HYDROCHLORIDE
     Indication: Sedation
     Dosage: 1 DF
     Route: 042
     Dates: start: 20230130

REACTIONS (3)
  - Rhabdomyolysis [Not Recovered/Not Resolved]
  - Blood creatine phosphokinase increased [Not Recovered/Not Resolved]
  - Off label use [Unknown]

NARRATIVE: CASE EVENT DATE: 20230203
